FAERS Safety Report 7951879-8 (Version None)
Quarter: 2011Q4

REPORT INFORMATION
  Report Type: 
  Country: None (occurrence: None)
  Receive Date: 20111201
  Receipt Date: 20111201
  Transmission Date: 20120403
  Serious: Yes (Other)
  Sender: FDA-Public Use
  Company Number: None

PATIENT
  Age: 49 Year
  Sex: Female
  Weight: 63.502 kg

DRUGS (1)
  1. GENERIC TRILEPTAL [Suspect]
     Indication: TRIGEMINAL NEURALGIA
     Dosage: TWO 150MG TABLETS
     Route: 048
     Dates: start: 20050101, end: 20111129

REACTIONS (2)
  - PRODUCT SUBSTITUTION ISSUE [None]
  - DRUG INEFFECTIVE [None]
